FAERS Safety Report 8932719 (Version 1)
Quarter: 2012Q4

REPORT INFORMATION
  Report Type: 
  Country: US (occurrence: US)
  Receive Date: 20121128
  Receipt Date: 20121128
  Transmission Date: 20130627
  Serious: Yes (Hospitalization, Other)
  Sender: FDA-Public Use
  Company Number: US-ROXANE LABORATORIES, INC.-2012-RO-02456RO

PATIENT
  Age: 3 Year
  Sex: Female

DRUGS (7)
  1. DEXAMETHASONE [Suspect]
     Indication: PHARYNGITIS
     Dosage: 10 mg
  2. ACETAMINOPHEN [Suspect]
     Indication: PHARYNGITIS
  3. AMOXICILLIN [Suspect]
     Indication: PHARYNGITIS
  4. DAUNORUBICIN [Suspect]
     Indication: ACUTE LYMPHOCYTIC LEUKAEMIA
     Route: 042
  5. DECADRON [Suspect]
     Indication: ACUTE LYMPHOCYTIC LEUKAEMIA
     Route: 042
  6. ASPARAGINASE [Suspect]
     Indication: ACUTE LYMPHOCYTIC LEUKAEMIA
     Route: 042
  7. VINCRISTINE [Suspect]
     Indication: ACUTE LYMPHOCYTIC LEUKAEMIA
     Route: 042

REACTIONS (7)
  - Tonsillar hypertrophy [Unknown]
  - Pyrexia [Unknown]
  - Gingival bleeding [Unknown]
  - Mouth haemorrhage [Unknown]
  - Duodenal ulcer perforation [Unknown]
  - Peritonitis [Unknown]
  - Osteonecrosis [Unknown]
